FAERS Safety Report 7179730-7 (Version None)
Quarter: 2010Q4

REPORT INFORMATION
  Report Type: 
  Country: None (occurrence: None)
  Receive Date: 20101221
  Receipt Date: 20101122
  Transmission Date: 20110411
  Serious: Yes (Other)
  Sender: FDA-Public Use
  Company Number: ZA-ROCHE-744171

PATIENT

DRUGS (2)
  1. KYTRIL [Suspect]
     Route: 065
  2. ANTIDEPRESSANT NOS [Interacting]
     Route: 065

REACTIONS (2)
  - DRUG INTERACTION [None]
  - SEROTONIN SYNDROME [None]
